FAERS Safety Report 5834013-X (Version None)
Quarter: 2008Q3

REPORT INFORMATION
  Report Type: 
  Country: None (occurrence: None)
  Receive Date: 20080805
  Receipt Date: 20080728
  Transmission Date: 20090109
  Serious: Yes (Other)
  Sender: FDA-Public Use
  Company Number: US-GENENTECH-265261

PATIENT
  Sex: Female
  Weight: 73.016 kg

DRUGS (4)
  1. BLINDED ERLOTINIB [Suspect]
     Indication: NON-SMALL CELL LUNG CANCER
     Dosage: 150 MG, QD
     Route: 048
     Dates: start: 20071212, end: 20080620
  2. BLINDED PLACEBO [Suspect]
     Indication: NON-SMALL CELL LUNG CANCER
     Dosage: 150 MG, QD
     Route: 048
     Dates: start: 20071212, end: 20080620
  3. BEVACIZUMAB [Suspect]
     Indication: NON-SMALL CELL LUNG CANCER
     Dosage: 15 MG/KG, Q3W
     Route: 042
     Dates: start: 20070919, end: 20080530
  4. CHEMOTHERAPY DRUG NOS [Suspect]
     Indication: NON-SMALL CELL LUNG CANCER
     Dosage: UNK UNK, UNKNOWN
     Route: 042
     Dates: start: 20070919, end: 20071121

REACTIONS (1)
  - MYELODYSPLASTIC SYNDROME [None]
